FAERS Safety Report 24303650 (Version 1)
Quarter: 2024Q3

REPORT INFORMATION
  Report Type: Spontaneous
  Country: CN (occurrence: CN)
  Receive Date: 20240910
  Receipt Date: 20240910
  Transmission Date: 20241016
  Serious: Yes (Hospitalization)
  Sender: MERCK
  Company Number: CN-009507513-2409CHN002490

PATIENT
  Age: 68 Year
  Sex: Male
  Weight: 47.5 kg

DRUGS (4)
  1. CILASTATIN SODIUM\IMIPENEM [Suspect]
     Active Substance: CILASTATIN SODIUM\IMIPENEM
     Indication: Anti-infective therapy
     Dosage: 500MG, Q6H
     Route: 041
     Dates: start: 20240821, end: 20240828
  2. SODIUM CHLORIDE [Concomitant]
     Active Substance: SODIUM CHLORIDE
     Indication: Medication dilution
     Dosage: 50ML, Q6H, ROUTE: PUMP INJECTION
     Dates: start: 20240821, end: 20240828
  3. SODIUM CHLORIDE [Concomitant]
     Active Substance: SODIUM CHLORIDE
     Dosage: 200ML, QD
     Route: 041
     Dates: start: 20240821, end: 20240904
  4. VANCOCIN [Concomitant]
     Active Substance: VANCOMYCIN HYDROCHLORIDE
     Indication: Anti-infective therapy
     Dosage: 1000MG, QD
     Route: 041
     Dates: start: 20240821, end: 20240904

REACTIONS (3)
  - Prothrombin time prolonged [Recovering/Resolving]
  - Prothrombin time ratio increased [Recovering/Resolving]
  - Product preparation issue [Unknown]

NARRATIVE: CASE EVENT DATE: 20240828
